FAERS Safety Report 25387984 (Version 1)
Quarter: 2025Q2

REPORT INFORMATION
  Report Type: Spontaneous
  Country: FR (occurrence: FR)
  Receive Date: 20250603
  Receipt Date: 20250603
  Transmission Date: 20250717
  Serious: Yes (Hospitalization)
  Sender: ROCHE
  Company Number: None

PATIENT
  Age: 64 Year
  Sex: Female
  Weight: 53 kg

DRUGS (3)
  1. RITUXIMAB [Suspect]
     Active Substance: RITUXIMAB
     Indication: Diffuse large B-cell lymphoma
     Dosage: MONOTHERAPY (4 COURSES)
     Route: 042
     Dates: start: 20241115, end: 20241203
  2. RITUXIMAB [Suspect]
     Active Substance: RITUXIMAB
     Dosage: R-CHOP (3 CURES)
     Route: 058
     Dates: start: 20241215, end: 20250130
  3. AMITRIPTYLINE HYDROCHLORIDE [Suspect]
     Active Substance: AMITRIPTYLINE HYDROCHLORIDE
     Indication: Sciatica
     Dosage: THE EVENING
     Route: 048
     Dates: start: 20250416, end: 20250521

REACTIONS (1)
  - Agranulocytosis [Recovered/Resolved]

NARRATIVE: CASE EVENT DATE: 20250517
